FAERS Safety Report 10021796 (Version 1)
Quarter: 2014Q1

REPORT INFORMATION
  Report Type: Spontaneous
  Country: US (occurrence: US)
  Receive Date: 20140319
  Receipt Date: 20140319
  Transmission Date: 20141002
  Serious: No
  Sender: FDA-Public Use
  Company Number: US-009507513-1403USA005844

PATIENT
  Age: 26 Year
  Sex: Female
  Weight: 98.87 kg

DRUGS (1)
  1. IMPLANON [Suspect]
     Indication: CONTRACEPTION
     Dosage: UNK
     Route: 059
     Dates: start: 20110302

REACTIONS (5)
  - Food craving [Unknown]
  - Unintended pregnancy [Unknown]
  - Nausea [Unknown]
  - Insomnia [Unknown]
  - Incorrect drug administration duration [Unknown]
